FAERS Safety Report 8704801 (Version 2)
Quarter: 2012Q4

REPORT INFORMATION
  Report Type: 
  Country: US (occurrence: US)
  Receive Date: 20120803
  Receipt Date: 20121107
  Transmission Date: 20130627
  Serious: Yes (Disabling)
  Sender: FDA-Public Use
  Company Number: US-GLAXOSMITHKLINE-A0845465A

PATIENT
  Age: 35 Year
  Sex: Female

DRUGS (2)
  1. PAXIL [Suspect]
     Indication: GENERALISED ANXIETY DISORDER
     Route: 048
     Dates: start: 2003, end: 2007
  2. NO CONCURRENT MEDICATION [Concomitant]

REACTIONS (18)
  - Weight increased [Not Recovered/Not Resolved]
  - Tinnitus [Unknown]
  - Performance status decreased [Unknown]
  - Memory impairment [Unknown]
  - Mental disorder [Unknown]
  - Flat affect [Unknown]
  - Economic problem [Unknown]
  - Hearing impaired [Unknown]
  - Fatigue [Unknown]
  - Personality change [Unknown]
  - Indifference [Unknown]
  - Dysphonia [Unknown]
  - Anger [Unknown]
  - Panic attack [Unknown]
  - Paranoia [Unknown]
  - Affect lability [Unknown]
  - Insomnia [Unknown]
  - Cystitis [Unknown]
